FAERS Safety Report 8461379-7 (Version None)
Quarter: 2012Q2

REPORT INFORMATION
  Report Type: 
  Country: None (occurrence: None)
  Receive Date: 20120625
  Receipt Date: 20120614
  Transmission Date: 20120825
  Serious: Yes (Other)
  Sender: FDA-Public Use
  Company Number: CA-JNJFOC-20120607428

PATIENT
  Sex: Female
  Weight: 65 kg

DRUGS (4)
  1. REMICADE [Suspect]
     Indication: COLITIS
     Route: 042
     Dates: start: 20070401
  2. REMICADE [Suspect]
     Dosage: INFUSION NUMBER 25
     Route: 042
     Dates: start: 20120420
  3. REMICADE [Suspect]
     Indication: CROHN'S DISEASE
     Dosage: INFUSION NUMBER 25
     Route: 042
     Dates: start: 20120420
  4. REMICADE [Suspect]
     Route: 042
     Dates: start: 20070401

REACTIONS (2)
  - CONVULSION [None]
  - SYNCOPE [None]
